FAERS Safety Report 8186648-X (Version None)
Quarter: 2012Q1

REPORT INFORMATION
  Report Type: 
  Country: None (occurrence: None)
  Receive Date: 20120302
  Receipt Date: 20120302
  Transmission Date: 20120608
  Serious: Yes (Hospitalization)
  Sender: FDA-Public Use
  Company Number: None

PATIENT
  Sex: Male
  Weight: 89.8 kg

DRUGS (14)
  1. DAUNORUBICIN HCL [Suspect]
     Dosage: 375 MG
     Dates: end: 20120216
  2. FENTANYL [Concomitant]
  3. PROPOFOL [Concomitant]
  4. ACYCLOVIR [Concomitant]
  5. NOREPINEPHERINE [Concomitant]
  6. RASBURICASE [Concomitant]
  7. PROTONIX [Concomitant]
  8. VANCOMYCIN [Concomitant]
  9. CYTARABINE [Suspect]
     Dosage: 1470 MG
     Dates: end: 20120219
  10. MAGNESIUM [Concomitant]
  11. AMIODARONE HCL [Concomitant]
  12. ALBUTEROL [Concomitant]
  13. MERREM [Concomitant]
  14. PHENYLEPHRINE HCL [Concomitant]

REACTIONS (5)
  - RENAL FAILURE ACUTE [None]
  - CONTINUOUS HAEMODIAFILTRATION [None]
  - BRADYCARDIA [None]
  - RESPIRATORY DISTRESS [None]
  - RESPIRATORY ACIDOSIS [None]
